FAERS Safety Report 18293165 (Version 1)
Quarter: 2020Q3

REPORT INFORMATION
  Report Type: Spontaneous
  Country: US (occurrence: US)
  Receive Date: 20200921
  Receipt Date: 20200921
  Transmission Date: 20201103
  Serious: Yes (Hospitalization)
  Sender: FDA-Public Use
  Company Number: None

PATIENT
  Age: 78 Year
  Sex: Male
  Weight: 98.1 kg

DRUGS (22)
  1. METOPROLOL TARTRATE 25MG [Concomitant]
     Active Substance: METOPROLOL TARTRATE
  2. PRAVASTATIN. [Concomitant]
     Active Substance: PRAVASTATIN
  3. VENTOLIN HFA [Concomitant]
     Active Substance: ALBUTEROL SULFATE
  4. GABAPENTIN 100MG [Concomitant]
     Active Substance: GABAPENTIN
  5. PANTOPRAZOLE 40MG [Concomitant]
     Active Substance: PANTOPRAZOLE SODIUM
  6. DUONEB 0.5?2.5MG [Concomitant]
  7. CYCLOBENZAPRINE 10MG [Concomitant]
     Active Substance: CYCLOBENZAPRINE
  8. OXYCODONE 10MG [Concomitant]
     Active Substance: OXYCODONE
  9. IMATINIB. [Suspect]
     Active Substance: IMATINIB MESYLATE
     Indication: CHRONIC MYELOID LEUKAEMIA
     Route: 048
     Dates: start: 20160621
  10. FERROUS SULFATE 325MG [Concomitant]
     Active Substance: FERROUS SULFATE
  11. WARFARIN 4MG [Concomitant]
     Active Substance: WARFARIN
  12. ATORVASTATIN 40MG [Concomitant]
     Active Substance: ATORVASTATIN
  13. PLAVIX [Concomitant]
     Active Substance: CLOPIDOGREL BISULFATE
  14. CYANOCOBALAMIN 1000MCG [Concomitant]
  15. OMEPRAZOLE 20MG [Concomitant]
     Active Substance: OMEPRAZOLE
  16. OXYCONTIN 10, 15, 20, 60MG [Concomitant]
  17. TRAZODONE [Concomitant]
     Active Substance: TRAZODONE HYDROCHLORIDE
  18. POTASSIUM CHLORIDE ER 10MEQ [Concomitant]
     Active Substance: POTASSIUM CHLORIDE
  19. KEPPRA [Concomitant]
     Active Substance: LEVETIRACETAM
  20. VOLTAREN [Concomitant]
     Active Substance: DICLOFENAC SODIUM
  21. LISINOPRIL. [Concomitant]
     Active Substance: LISINOPRIL
  22. PROCHLORPERAZINE 10MG [Concomitant]

REACTIONS (1)
  - Lung disorder [None]

NARRATIVE: CASE EVENT DATE: 20200921
